FAERS Safety Report 9999063 (Version 1)
Quarter: 2014Q1

REPORT INFORMATION
  Report Type: Spontaneous
  Country: US (occurrence: None)
  Receive Date: 20140311
  Receipt Date: 20140311
  Transmission Date: 20141002
  Serious: Yes (Other)
  Sender: FDA-Public Use
  Company Number: None

PATIENT
  Age: 22 Year
  Sex: Female
  Weight: 53.52 kg

DRUGS (1)
  1. TRI-SPRINTEC [Suspect]
     Indication: ECONOMIC PROBLEM
     Dosage: TAKEN BY MOUTH
     Dates: start: 20130201, end: 20140310

REACTIONS (3)
  - Acne cystic [None]
  - Menstrual disorder [None]
  - Ill-defined disorder [None]
